FAERS Safety Report 7191780-3 (Version None)
Quarter: 2010Q4

REPORT INFORMATION
  Report Type: 
  Country: None (occurrence: None)
  Receive Date: 20101223
  Receipt Date: 20101130
  Transmission Date: 20110411
  Serious: Yes (Hospitalization)
  Sender: FDA-Public Use
  Company Number: JP-BAYER-2010-001218

PATIENT
  Sex: Male

DRUGS (2)
  1. NEXAVAR [Suspect]
     Dosage: 400 MG, BID
     Route: 048
     Dates: start: 20100621, end: 20100101
  2. NEXAVAR [Suspect]
     Dosage: 400 MG, QD
     Route: 048
     Dates: start: 20101012

REACTIONS (2)
  - CEREBRAL INFARCTION [None]
  - PALMAR-PLANTAR ERYTHRODYSAESTHESIA SYNDROME [None]
